FAERS Safety Report 8280815 (Version 2)
Quarter: 2014Q1

REPORT INFORMATION
  Report Type: Spontaneous
  Country: None (occurrence: FR)
  Receive Date: 20111208
  Receipt Date: 20140310
  Transmission Date: 20141002
  Serious: Yes (Other)
  Sender: FDA-Public Use
  Company Number: FR-BAXTER-2011BH037870

PATIENT
  Age: 50 Year
  Sex: Female

DRUGS (9)
  1. ENDOXAN 2000 MG, LYOPHILISAT POUR SOLUTION INJECTABLE [Suspect]
     Indication: BREAST CANCER
     Route: 042
     Dates: start: 20100118, end: 20100118
  2. ENDOXAN 2000 MG, LYOPHILISAT POUR SOLUTION INJECTABLE [Suspect]
     Route: 042
     Dates: start: 20091228, end: 20091228
  3. ENDOXAN 2000 MG, LYOPHILISAT POUR SOLUTION INJECTABLE [Suspect]
     Route: 042
     Dates: start: 20091204, end: 20091204
  4. FLUOROURACIL TEVA [Suspect]
     Indication: BREAST CANCER
     Route: 042
     Dates: start: 20100118, end: 20100118
  5. FLUOROURACIL TEVA [Suspect]
     Route: 042
     Dates: start: 20091228, end: 20091228
  6. FLUOROURACIL TEVA [Suspect]
     Route: 042
     Dates: start: 20091204, end: 20091204
  7. EPIRUBICIN MYLAN [Suspect]
     Indication: BREAST CANCER
     Route: 042
     Dates: start: 20100118, end: 20100118
  8. EPIRUBICIN MYLAN [Suspect]
     Route: 042
     Dates: start: 20091228, end: 20091228
  9. EPIRUBICIN MYLAN [Suspect]
     Route: 042
     Dates: start: 20091204, end: 20091204

REACTIONS (3)
  - Extravasation [Recovered/Resolved]
  - Oedema [Recovered/Resolved]
  - Skin necrosis [Recovered/Resolved]
